FAERS Safety Report 5924799-8 (Version None)
Quarter: 2008Q4

REPORT INFORMATION
  Report Type: 
  Country: None (occurrence: None)
  Receive Date: 20081017
  Receipt Date: 20081017
  Transmission Date: 20090506
  Serious: No
  Sender: FDA-Public Use
  Company Number: None

PATIENT
  Age: 47 Year
  Sex: Female
  Weight: 48.9885 kg

DRUGS (1)
  1. VIVAGLOBIN [Suspect]
     Indication: IMMUNODEFICIENCY COMMON VARIABLE
     Dosage: 10.8 GRAMS WEEKLY SQ
     Route: 058
     Dates: start: 20081008, end: 20081015

REACTIONS (4)
  - DIARRHOEA [None]
  - FATIGUE [None]
  - LUNG DISORDER [None]
  - PAIN [None]
